FAERS Safety Report 9898238 (Version 2)
Quarter: 2014Q1

REPORT INFORMATION
  Report Type: Spontaneous
  Country: US (occurrence: US)
  Receive Date: 20140214
  Receipt Date: 20140214
  Transmission Date: 20141002
  Serious: No
  Sender: FDA-Public Use
  Company Number: US-GILEAD-2011-0041610

PATIENT
  Age: 69 Year
  Sex: Male

DRUGS (3)
  1. LETAIRIS [Suspect]
     Indication: PULMONARY HYPERTENSION
     Route: 048
     Dates: start: 20110616
  2. LETAIRIS [Suspect]
     Indication: SLEEP APNOEA SYNDROME
  3. LASIX                              /00032601/ [Concomitant]

REACTIONS (1)
  - Fluid retention [Unknown]
